FAERS Safety Report 23531774 (Version 1)
Quarter: 2024Q1

REPORT INFORMATION
  Report Type: Spontaneous
  Country: US (occurrence: US)
  Receive Date: 20240216
  Receipt Date: 20240216
  Transmission Date: 20240410
  Serious: Yes (Other)
  Sender: FDA-Public Use
  Company Number: US-COSETTE-CP2024US000024

PATIENT
  Age: 75 Year
  Sex: Male

DRUGS (5)
  1. BENICAR [Suspect]
     Active Substance: OLMESARTAN MEDOXOMIL
     Indication: Product used for unknown indication
     Route: 065
  2. ORGOVYX [Suspect]
     Active Substance: RELUGOLIX
     Indication: Prostate cancer
     Route: 048
     Dates: start: 20220823, end: 20220823
  3. ORGOVYX [Suspect]
     Active Substance: RELUGOLIX
     Route: 048
     Dates: start: 20220824
  4. TAMSULOSIN [Suspect]
     Active Substance: TAMSULOSIN
     Indication: Product used for unknown indication
     Route: 065
  5. XTANDI [Concomitant]
     Active Substance: ENZALUTAMIDE
     Indication: Product used for unknown indication
     Route: 065

REACTIONS (5)
  - Loss of consciousness [Unknown]
  - Drug interaction [Unknown]
  - Atrial tachycardia [Unknown]
  - Ear pain [Unknown]
  - Hypoacusis [Not Recovered/Not Resolved]

NARRATIVE: CASE EVENT DATE: 20230901
